FAERS Safety Report 24686905 (Version 1)
Quarter: 2024Q4

REPORT INFORMATION
  Report Type: Spontaneous
  Country: NL (occurrence: NL)
  Receive Date: 20241202
  Receipt Date: 20241202
  Transmission Date: 20250115
  Serious: Yes (Hospitalization, Other)
  Sender: BAXTER
  Company Number: None

PATIENT
  Age: 46 Year
  Sex: Female
  Weight: 70 kg

DRUGS (5)
  1. CYCLOPHOSPHAMIDE [Suspect]
     Active Substance: CYCLOPHOSPHAMIDE
     Indication: Chemotherapy
     Dosage: 1 DOSAGE FORM (MEDICINE PRESCRIBED BY DOCTOR: YES), (1 X CHEMOTHERAPY DO NOT KNOW THE DOSE), (DOSAGE
     Route: 065
     Dates: start: 20220923, end: 20220925
  2. DOXORUBICIN [Suspect]
     Active Substance: DOXORUBICIN
     Indication: Chemotherapy
     Dosage: 1 DOSAGE FORM, (MEDICINE PRESCRIBED BY DOCTOR: YES), (NO IDEA ABOUT CHEMOTHERAPY), (DOSAGE FORM: INF
     Route: 065
     Dates: start: 20220923, end: 20220925
  3. DEXAMETHASONE [Concomitant]
     Active Substance: DEXAMETHASONE
     Dosage: TABLET, 4 MG, (BRAND NAME NOT SPECIFIED)
     Route: 048
  4. PEGFILGRASTIM [Concomitant]
     Active Substance: PEGFILGRASTIM
     Dosage: INJECTION FLUID, 10 MG/ML (BRAND NAME NOT SPECIFIED)
     Route: 065
  5. AKYNZEO [Concomitant]
     Dosage: CAPSULE, 300/0.5 MG
     Route: 048

REACTIONS (1)
  - Pancreatitis [Recovered/Resolved]
